FAERS Safety Report 6084533-0 (Version None)
Quarter: 2009Q1

REPORT INFORMATION
  Report Type: 
  Country: None (occurrence: None)
  Receive Date: 20090217
  Receipt Date: 20081216
  Transmission Date: 20090719
  Serious: Yes (Life-Threatening, Hospitalization)
  Sender: FDA-Public Use
  Company Number: 1-17543320

PATIENT
  Sex: Male

DRUGS (14)
  1. FENTANYL [Suspect]
     Indication: ANAESTHESIA
     Dates: start: 20081124, end: 20081124
  2. VOLPLEX [Suspect]
     Dosage: 500 ML, INTRAVENOUS
     Route: 042
     Dates: start: 20081124, end: 20081124
  3. CEFUROXIME [Suspect]
     Indication: ANTIBIOTIC PROPHYLAXIS
     Dosage: 1.5 G, INTRAVENOUS
     Route: 042
     Dates: start: 20081124, end: 20081124
  4. PROPOFOL [Suspect]
     Indication: ANAESTHESIA
     Dosage: 150 MG STAT, THEN 12-HOUR INFUSION AT 0 TO 20 ML/HR, INTRAVENOUS
     Route: 042
     Dates: start: 20081124, end: 20081124
  5. VECURONIUM BROMIDE [Suspect]
     Indication: ANAESTHESIA
     Dates: start: 20081124, end: 20081124
  6. ACETYLSALICYLIC ACID SRT [Concomitant]
  7. CALCIUM CARBONATE [Concomitant]
  8. ATENOLOL [Concomitant]
  9. ALENDRONIC ACID [Concomitant]
  10. VISCOTEARS (CARBOMER) [Concomitant]
  11. ISPAGHULA HUSK [Concomitant]
  12. SENNA [Concomitant]
  13. NULYTELY [Concomitant]
  14. TAMSULOSIN HCL [Concomitant]

REACTIONS (1)
  - ANAPHYLACTIC REACTION [None]
